FAERS Safety Report 6551143-8 (Version None)
Quarter: 2010Q1

REPORT INFORMATION
  Report Type: 
  Country: None (occurrence: None)
  Receive Date: 20100121
  Receipt Date: 20100111
  Transmission Date: 20100710
  Serious: Yes (Hospitalization, Other)
  Sender: FDA-Public Use
  Company Number: DE-1180157

PATIENT
  Age: 83 Year
  Sex: Female

DRUGS (8)
  1. FLUORESCEIN SODIUM [Suspect]
     Indication: ANGIOGRAM RETINA
     Dosage: 5 ML (0.16ML/S), INTRAVENOUS BOLUS
     Route: 040
     Dates: start: 20091202, end: 20091202
  2. ASPIRIN [Concomitant]
  3. RAMIPRIL [Concomitant]
  4. METOPROLOL (METOPROLOL) [Concomitant]
  5. AMLODIPINE [Concomitant]
  6. SIMVASTATIN [Concomitant]
  7. HYDROCHLOROTHIAZIDE [Concomitant]
  8. SYMBICORT [Concomitant]

REACTIONS (6)
  - DEMENTIA [None]
  - HALLUCINATION [None]
  - HYPERSOMNIA [None]
  - HYPOAESTHESIA [None]
  - MENTAL DISORDER [None]
  - SUICIDAL IDEATION [None]
